FAERS Safety Report 7975814-1 (Version None)
Quarter: 2011Q4

REPORT INFORMATION
  Report Type: 
  Country: None (occurrence: None)
  Receive Date: 20111213
  Receipt Date: 20110922
  Transmission Date: 20120403
  Serious: No
  Sender: FDA-Public Use
  Company Number: US-AMGEN-USASP2011049098

PATIENT
  Age: 26 Year
  Sex: Male

DRUGS (2)
  1. ENBREL [Suspect]
     Indication: RHEUMATOID ARTHRITIS
     Dosage: 50 MG, QWK
     Dates: start: 20030115, end: 20110901
  2. TREXALL [Concomitant]
     Dosage: 1 MG, QWK
     Dates: start: 20010101

REACTIONS (9)
  - OROPHARYNGEAL PAIN [None]
  - CHEST PAIN [None]
  - DIZZINESS [None]
  - DIARRHOEA [None]
  - PARAESTHESIA [None]
  - NAUSEA [None]
  - BODY TEMPERATURE INCREASED [None]
  - VOMITING [None]
  - MIGRAINE [None]
